FAERS Safety Report 8187510-9 (Version None)
Quarter: 2012Q1

REPORT INFORMATION
  Report Type: 
  Country: None (occurrence: None)
  Receive Date: 20120217
  Receipt Date: 20110722
  Transmission Date: 20120608
  Serious: Yes (Other)
  Sender: FDA-Public Use
  Company Number: AUR-APL-2011-03957

PATIENT
  Age: 65 Year
  Sex: Female
  Weight: 95.2554 kg

DRUGS (5)
  1. LIPITOR [Concomitant]
  2. NORVASC [Concomitant]
  3. POTASSIUM CHLORIDE [Concomitant]
  4. SIMVASTATIN [Suspect]
     Indication: BLOOD CHOLESTEROL INCREASED
     Dosage: (20 MG, 1 D), ORAL
     Route: 048
     Dates: start: 20110628
  5. IRON (IRON) [Concomitant]

REACTIONS (2)
  - MALAISE [None]
  - DIZZINESS [None]
